FAERS Safety Report 12348506 (Version 1)
Quarter: 2016Q2

REPORT INFORMATION
  Report Type: Spontaneous
  Country: ES (occurrence: ES)
  Receive Date: 20160509
  Receipt Date: 20160509
  Transmission Date: 20160815
  Serious: Yes (Death, Other)
  Sender: FDA-Public Use
  Company Number: ES-TEVA-657188ISR

PATIENT
  Age: 50 Year
  Sex: Male

DRUGS (2)
  1. TEMOZOLOMIDE. [Suspect]
     Active Substance: TEMOZOLOMIDE
     Indication: ACTH-PRODUCING PITUITARY TUMOUR
     Dosage: 200 MG/M2/DAY DURING THE FIRST 3 CYCLES LATER DOSE REDUCED TO 150 MG/M2/DAY (4 CYCLES)
     Route: 065
  2. TEMOZOLOMIDE. [Suspect]
     Active Substance: TEMOZOLOMIDE
     Indication: ACTH-PRODUCING PITUITARY TUMOUR
     Dosage: 150 MG/M2/DAY (SECOND COURSE OF TREATMENT)
     Route: 065

REACTIONS (6)
  - Neutropenia [Unknown]
  - Leukopenia [Unknown]
  - Thrombocytopenia [Unknown]
  - Treatment failure [Unknown]
  - Disease progression [Fatal]
  - Drug resistance [Unknown]
